FAERS Safety Report 5295725-2 (Version None)
Quarter: 2007Q1

REPORT INFORMATION
  Report Type: 
  Country: None (occurrence: None)
  Receive Date: 20070113
  Receipt Date: 20060711
  Transmission Date: 20070707
  Serious: Yes (Other)
  Sender: FDA-Public Use
  Company Number: HQWYE896013JUL06

PATIENT

DRUGS (2)
  1. PREMPRO [Suspect]
  2. PREMARIN [Suspect]
     Dosage: 120 MOS. (10 YEARS)
     Dates: start: 19950401, end: 19950801

REACTIONS (1)
  - BREAST CANCER [None]
